FAERS Safety Report 20007151 (Version 1)
Quarter: 2021Q4

REPORT INFORMATION
  Report Type: Spontaneous
  Country: CZ (occurrence: CZ)
  Receive Date: 20211028
  Receipt Date: 20211028
  Transmission Date: 20220303
  Serious: Yes (Other)
  Sender: FDA-Public Use
  Company Number: None

PATIENT
  Age: 43 Year
  Sex: Male

DRUGS (1)
  1. CYCLOSPORINE [Suspect]
     Active Substance: CYCLOSPORINE
     Indication: Dermatitis atopic
     Dosage: 275 MG
     Route: 048
     Dates: start: 20210922, end: 20211007

REACTIONS (2)
  - Ocular discomfort [Unknown]
  - Vision blurred [Unknown]

NARRATIVE: CASE EVENT DATE: 20211006
